FAERS Safety Report 13202048 (Version 1)
Quarter: 2017Q1

REPORT INFORMATION
  Report Type: Spontaneous
  Country: CH (occurrence: CH)
  Receive Date: 20170209
  Receipt Date: 20170209
  Transmission Date: 20170428
  Serious: Yes (Hospitalization)
  Sender: FDA-Public Use
  Company Number: PHHY2017CH017234

PATIENT
  Age: 85 Year
  Sex: Male
  Weight: 61 kg

DRUGS (3)
  1. DIGOXIN. [Suspect]
     Active Substance: DIGOXIN
     Dosage: 0.125 MG QD (0.25 MG/DAY AND 0.125 MG/DAY IN ALTERNATION)
     Route: 048
     Dates: start: 2012
  2. DIGOXIN. [Suspect]
     Active Substance: DIGOXIN
     Indication: ATRIAL FIBRILLATION
     Dosage: 0.25 MG QD (0.25 MG/DAY AND 0.125 MG/DAY IN ALTERNATION )
     Route: 048
     Dates: start: 2012
  3. DIGOXIN. [Suspect]
     Active Substance: DIGOXIN
     Dosage: 0.375 MG (0.25 MG + 0.125 MG/DAY) QD
     Route: 048
     Dates: start: 20161220, end: 20161229

REACTIONS (4)
  - Cardioactive drug level increased [Recovered/Resolved]
  - Toxicity to various agents [Recovered/Resolved]
  - Prescribed overdose [Recovered/Resolved]
  - Bradyarrhythmia [Recovered/Resolved]

NARRATIVE: CASE EVENT DATE: 20161220
